FAERS Safety Report 24523967 (Version 1)
Quarter: 2024Q4

REPORT INFORMATION
  Report Type: Spontaneous
  Country: US (occurrence: US)
  Receive Date: 20241018
  Receipt Date: 20241018
  Transmission Date: 20250115
  Serious: No
  Sender: SANOFI AVENTIS
  Company Number: US-SA-2024SA295096

PATIENT
  Age: 49 Year
  Sex: Female
  Weight: 73 kg

DRUGS (27)
  1. FABRAZYME [Suspect]
     Active Substance: AGALSIDASE BETA
     Indication: Fabry^s disease
     Dosage: 75 MG, QOW
     Route: 042
     Dates: start: 20240206
  2. SODIUM CHLORIDE [Concomitant]
     Active Substance: SODIUM CHLORIDE
  3. STERILE WATER [Concomitant]
     Active Substance: WATER
  4. EPINEPHRINE [EPINEPHRINE HYDROCHLORIDE] [Concomitant]
  5. METOPROLOL TARTRATE [Concomitant]
     Active Substance: METOPROLOL TARTRATE
  6. RESTASIS [Concomitant]
     Active Substance: CYCLOSPORINE
  7. HERBALS\SAW PALMETTO [Concomitant]
     Active Substance: HERBALS\SAW PALMETTO
  8. SODIUM CHLORIDE [Concomitant]
     Active Substance: SODIUM CHLORIDE
  9. DIETARY SUPPLEMENT [Concomitant]
     Active Substance: DIETARY SUPPLEMENT
  10. HERBALS\WITHANIA SOMNIFERA ROOT [Concomitant]
     Active Substance: HERBALS\WITHANIA SOMNIFERA ROOT
  11. LEVOTHYROXINE SODIUM [Concomitant]
     Active Substance: LEVOTHYROXINE SODIUM
  12. SEROQUEL [Concomitant]
     Active Substance: QUETIAPINE FUMARATE
  13. VITAMINS [Concomitant]
     Active Substance: VITAMINS
  14. VITAMIN B [Concomitant]
     Active Substance: VITAMIN B
  15. OMEPRAZOLE [Concomitant]
     Active Substance: OMEPRAZOLE
  16. HERBALS\TURMERIC [Concomitant]
     Active Substance: HERBALS\TURMERIC
  17. CLONAZEPAM [Concomitant]
     Active Substance: CLONAZEPAM
  18. ZINC [Concomitant]
     Active Substance: ZINC
  19. DIPHENHYDRAMINE HYDROCHLORIDE [Concomitant]
     Active Substance: DIPHENHYDRAMINE HYDROCHLORIDE
  20. ESTRACE [Concomitant]
     Active Substance: ESTRADIOL
  21. VITAMIN D3 [Concomitant]
     Active Substance: CHOLECALCIFEROL
  22. CETIRIZINE HCL [Concomitant]
     Active Substance: CETIRIZINE HYDROCHLORIDE
  23. METAMUCIL [Concomitant]
     Active Substance: PLANTAGO SEED
  24. FLUOCINOLONE ACETONIDE [Concomitant]
     Active Substance: FLUOCINOLONE ACETONIDE
  25. COZAAR [Concomitant]
     Active Substance: LOSARTAN POTASSIUM
  26. KRILL OIL [Concomitant]
     Active Substance: DIETARY SUPPLEMENT\KRILL OIL
  27. ASPIRIN [Concomitant]
     Active Substance: ASPIRIN

REACTIONS (1)
  - Mucous stools [Unknown]

NARRATIVE: CASE EVENT DATE: 20240101
